FAERS Safety Report 5787508-1 (Version None)
Quarter: 2008Q2

REPORT INFORMATION
  Report Type: 
  Country: None (occurrence: None)
  Receive Date: 20080625
  Receipt Date: 20080102
  Transmission Date: 20081010
  Serious: No
  Sender: FDA-Public Use
  Company Number: US-ASTRAZENECA-2007UW25523

PATIENT
  Age: 1018 Month
  Sex: Female

DRUGS (5)
  1. PULMICORT RESPULES [Suspect]
     Indication: CHRONIC OBSTRUCTIVE PULMONARY DISEASE
     Route: 055
     Dates: start: 20071001
  2. XOPENEX [Suspect]
     Indication: CHRONIC OBSTRUCTIVE PULMONARY DISEASE
     Dosage: 0.63 MG/3ML BID
     Dates: start: 20071001, end: 20071101
  3. RHINOCORT [Suspect]
     Indication: SINUSITIS
     Route: 045
     Dates: start: 20071001
  4. PREDNISONE [Suspect]
     Indication: SINUSITIS
     Dates: start: 20071001
  5. SINGULAIR [Suspect]
     Indication: SINUSITIS
     Dates: start: 20071001

REACTIONS (2)
  - HOT FLUSH [None]
  - HYPERHIDROSIS [None]
